FAERS Safety Report 5703845-0 (Version None)
Quarter: 2008Q2

REPORT INFORMATION
  Report Type: 
  Country: None (occurrence: None)
  Receive Date: 20080414
  Receipt Date: 20080307
  Transmission Date: 20081010
  Serious: Yes (Death, Other)
  Sender: FDA-Public Use
  Company Number: GB-BAYER-200815800GPV

PATIENT

DRUGS (2)
  1. ALEMTUZUMAB [Suspect]
     Indication: HAEMATOLOGICAL MALIGNANCY
     Route: 065
  2. CYCLOSPORINE [Concomitant]
     Indication: PROPHYLAXIS AGAINST GRAFT VERSUS HOST DISEASE
     Route: 065

REACTIONS (26)
  - ACUTE GRAFT VERSUS HOST DISEASE [None]
  - ACUTE GRAFT VERSUS HOST DISEASE IN LIVER [None]
  - ACUTE GRAFT VERSUS HOST DISEASE IN SKIN [None]
  - ACUTE HEPATIC FAILURE [None]
  - ADENOVIRUS INFECTION [None]
  - ANAEMIA HAEMOLYTIC AUTOIMMUNE [None]
  - AUTOIMMUNE THROMBOCYTOPENIA [None]
  - BRONCHOPULMONARY ASPERGILLOSIS [None]
  - CEREBRAL ISCHAEMIA [None]
  - CHRONIC GRAFT VERSUS HOST DISEASE [None]
  - ERECTILE DYSFUNCTION [None]
  - GRAFT VERSUS HOST DISEASE [None]
  - GRAFT VERSUS HOST DISEASE IN LUNG [None]
  - HEPATITIS B [None]
  - HERPES ZOSTER [None]
  - HYPERTHYROIDISM [None]
  - HYPOTHYROIDISM [None]
  - INFECTION [None]
  - LOWER RESPIRATORY TRACT INFECTION [None]
  - PNEUMOCYSTIS JIROVECI PNEUMONIA [None]
  - PREMATURE MENOPAUSE [None]
  - RENAL IMPAIRMENT [None]
  - RESPIRATORY FAILURE [None]
  - SQUAMOUS CELL CARCINOMA OF SKIN [None]
  - TRIGEMINAL NEURALGIA [None]
  - TUBERCULOSIS [None]
